FAERS Safety Report 7332123-1 (Version None)
Quarter: 2011Q1

REPORT INFORMATION
  Report Type: 
  Country: None (occurrence: None)
  Receive Date: 20110304
  Receipt Date: 20110221
  Transmission Date: 20110831
  Serious: Yes (Other)
  Sender: FDA-Public Use
  Company Number: PHHY2011FR15366

PATIENT
  Sex: Male
  Weight: 46 kg

DRUGS (3)
  1. TEGRETOL [Suspect]
     Indication: ABNORMAL BEHAVIOUR
     Dosage: 200 MG, BID
  2. TEGRETOL [Suspect]
     Dosage: 400 MG, BID
  3. DEPAKENE [Concomitant]
     Indication: EPILEPSY

REACTIONS (4)
  - EYES SUNKEN [None]
  - TANNING [None]
  - ADRENAL INSUFFICIENCY [None]
  - FATIGUE [None]
